FAERS Safety Report 19442898 (Version 4)
Quarter: 2021Q3

REPORT INFORMATION
  Report Type: Spontaneous
  Country: US (occurrence: US)
  Receive Date: 20210621
  Receipt Date: 20210908
  Transmission Date: 20211014
  Serious: No
  Sender: FDA-Public Use
  Company Number: US-VERTEX PHARMACEUTICALS-2021-009292

PATIENT
  Sex: Male

DRUGS (7)
  1. CHOLECALCIFEROL [Concomitant]
     Active Substance: CHOLECALCIFEROL
  2. HYPERSAL [Concomitant]
     Active Substance: SODIUM CHLORIDE
     Route: 055
  3. CREON [Concomitant]
     Active Substance: PANCRELIPASE AMYLASE\PANCRELIPASE LIPASE\PANCRELIPASE PROTEASE
  4. ALBUTEROL [SALBUTAMOL] [Concomitant]
     Active Substance: ALBUTEROL
  5. DORNASE ALFA. [Concomitant]
     Active Substance: DORNASE ALFA
     Route: 055
  6. RELIZORB [Concomitant]
  7. TRIKAFTA [Suspect]
     Active Substance: ELEXACAFTOR\IVACAFTOR\TEZACAFTOR
     Indication: CYSTIC FIBROSIS
     Dosage: 2 TABS IN AM; 1 TAB IN PM
     Route: 048
     Dates: start: 202001, end: 20210724

REACTIONS (2)
  - Feeling abnormal [Not Recovered/Not Resolved]
  - Executive dysfunction [Not Recovered/Not Resolved]

NARRATIVE: CASE EVENT DATE: 2020
